FAERS Safety Report 20838396 (Version 1)
Quarter: 2022Q2

REPORT INFORMATION
  Report Type: Spontaneous
  Country: FR (occurrence: FR)
  Receive Date: 20220517
  Receipt Date: 20220517
  Transmission Date: 20220720
  Serious: Yes (Life-Threatening)
  Sender: FDA-Public Use
  Company Number: None

PATIENT
  Age: 66 Year
  Sex: Male
  Weight: 79 kg

DRUGS (2)
  1. CISPLATIN [Suspect]
     Active Substance: CISPLATIN
     Indication: Squamous cell carcinoma
     Dosage: STRENGTH: 1 MG/ML
     Route: 042
     Dates: start: 20220218, end: 20220225
  2. NAVELBINE [Suspect]
     Active Substance: VINORELBINE TARTRATE
     Indication: Squamous cell carcinoma
     Dosage: STRENGTH: 50 MG/5 ML, SOLUTION FOR INJECTION IN A VIAL
     Route: 042
     Dates: start: 20220218, end: 20220225

REACTIONS (4)
  - Bacterial translocation [Recovering/Resolving]
  - Septic shock [Recovering/Resolving]
  - Ileus paralytic [Recovering/Resolving]
  - Agranulocytosis [Recovered/Resolved]

NARRATIVE: CASE EVENT DATE: 20220228
